FAERS Safety Report 9172777 (Version 1)
Quarter: 2013Q1

REPORT INFORMATION
  Report Type: Spontaneous
  Country: US (occurrence: US)
  Receive Date: 20130319
  Receipt Date: 20130319
  Transmission Date: 20140127
  Serious: No
  Sender: FDA-Public Use
  Company Number: US-009507513-1303USA005583

PATIENT
  Sex: 0

DRUGS (3)
  1. INTRONA [Suspect]
     Dosage: 36.8 MILLION UNITS DAILY FOR 5 DAYS, 2 WEEKS, THEN 1 WEEK OF  WITHOUT THERAPY, AND ANOTHER WEEK OF T
     Route: 042
     Dates: start: 20130218, end: 20130222
  2. INTRONA [Suspect]
     Dosage: 36.8 MILLION UNITS DAILY FOR 5 DAYS, 2 WEEKS, THEN 1 WEEK OF  WITHOUT THERAPY, AND ANOTHER WEEK OF T
     Route: 042
     Dates: start: 20130225, end: 20130301
  3. INTRONA [Suspect]
     Dosage: 36.8 MILLION UNITS DAILY FOR 5 DAYS, 2 WEEKS, THEN 1 WEEK OF  WITHOUT THERAPY, AND ANOTHER WEEK OF T
     Route: 042
     Dates: start: 20130311

REACTIONS (4)
  - Drug dose omission [Unknown]
  - Incorrect dose administered [Unknown]
  - Product packaging quantity issue [Unknown]
  - No adverse event [Unknown]
